FAERS Safety Report 18096871 (Version 1)
Quarter: 2020Q3

REPORT INFORMATION
  Report Type: Spontaneous
  Country: US (occurrence: US)
  Receive Date: 20200730
  Receipt Date: 20200730
  Transmission Date: 20201103
  Serious: Yes (Death, Life-Threatening, Hospitalization, Disabling, Other)
  Sender: FDA-Public Use
  Company Number: None

PATIENT
  Age: 38 Year
  Sex: Male
  Weight: 155.6 kg

DRUGS (5)
  1. TOCILIZUMAB. [Concomitant]
     Active Substance: TOCILIZUMAB
     Dates: start: 20200625, end: 20200625
  2. DECADRON [Concomitant]
     Active Substance: DEXAMETHASONE
     Dates: start: 20200623, end: 20200702
  3. REMDESIVIR. [Suspect]
     Active Substance: REMDESIVIR
     Indication: COVID-19
     Route: 040
     Dates: start: 20200624, end: 20200627
  4. CONVALESCENT PLASMA [Concomitant]
     Active Substance: HUMAN PLASMA
     Dates: start: 20200623, end: 20200623
  5. REMDESIVIR. [Suspect]
     Active Substance: REMDESIVIR
     Indication: COVID-19
     Route: 040
     Dates: start: 20200623, end: 20200623

REACTIONS (4)
  - Brain injury [None]
  - Brain oedema [None]
  - Brain herniation [None]
  - Cardiac arrest [None]

NARRATIVE: CASE EVENT DATE: 20200623
